FAERS Safety Report 15340569 (Version 3)
Quarter: 2018Q4

REPORT INFORMATION
  Report Type: Spontaneous
  Country: DE (occurrence: DE)
  Receive Date: 20180831
  Receipt Date: 20181121
  Transmission Date: 20190204
  Serious: Yes (Other)
  Sender: FDA-Public Use
  Company Number: DE-009507513-1808DEU011098

PATIENT
  Sex: Male
  Weight: 75 kg

DRUGS (3)
  1. TIOBLIS 10 MG/80 MG [Suspect]
     Active Substance: ATORVASTATIN\EZETIMIBE
     Indication: LIVER DISORDER
  2. TIOBLIS 10 MG/80 MG [Suspect]
     Active Substance: ATORVASTATIN\EZETIMIBE
     Indication: HYPERLIPIDAEMIA
     Dosage: 1 DF, QD (ONCE DAILY IN THE EVENING)
     Route: 048
     Dates: start: 20170621, end: 20180412
  3. AERIUS (DESLORATADINE) [Concomitant]
     Active Substance: DESLORATADINE
     Indication: HYPERSENSITIVITY
     Dosage: 5 MILLIGRAM, ONCE DAILY
     Dates: start: 20070717

REACTIONS (2)
  - Nephrolithiasis [Not Recovered/Not Resolved]
  - Hepatic enzyme increased [Unknown]

NARRATIVE: CASE EVENT DATE: 2018
